FAERS Safety Report 19883842 (Version 1)
Quarter: 2021Q3

REPORT INFORMATION
  Report Type: Spontaneous
  Country: US (occurrence: US)
  Receive Date: 20210926
  Receipt Date: 20210926
  Transmission Date: 20211014
  Serious: Yes (Disabling)
  Sender: FDA-Public Use
  Company Number: None

PATIENT
  Age: 17 Year
  Sex: Female
  Weight: 50.4 kg

DRUGS (2)
  1. REGEN?COV [Suspect]
     Active Substance: CASIRIVIMAB\IMDEVIMAB
     Indication: COVID-19
     Dates: start: 20210906, end: 20210906
  2. LARISSA BC [Concomitant]

REACTIONS (4)
  - Tremor [None]
  - Erythema [None]
  - Muscle twitching [None]
  - Dysphemia [None]

NARRATIVE: CASE EVENT DATE: 20210906
